FAERS Safety Report 5513267-3 (Version None)
Quarter: 2007Q4

REPORT INFORMATION
  Report Type: 
  Country: None (occurrence: None)
  Receive Date: 20071112
  Receipt Date: 20071101
  Transmission Date: 20080405
  Serious: Yes (Other)
  Sender: FDA-Public Use
  Company Number: CA-WYE-H01059007

PATIENT
  Sex: Female
  Weight: 68.5 kg

DRUGS (3)
  1. ADVIL [Suspect]
     Indication: OSTEOARTHRITIS
     Route: 048
     Dates: start: 20041010, end: 20070606
  2. HYDROCHLOROTHIAZIDE [Concomitant]
     Dosage: UNKNOWN
     Route: 065
     Dates: start: 20040715, end: 20070831
  3. DIOVAN [Concomitant]
     Indication: HYPERTENSION
     Dosage: 180/12.5
     Route: 065
     Dates: start: 20040715, end: 20070831

REACTIONS (1)
  - RENAL FAILURE ACUTE [None]
